FAERS Safety Report 25952130 (Version 1)
Quarter: 2025Q4

REPORT INFORMATION
  Report Type: Spontaneous
  Country: US (occurrence: None)
  Receive Date: 20251022
  Receipt Date: 20251022
  Transmission Date: 20260118
  Serious: Yes (Life-Threatening)
  Sender: FDA-CTU
  Company Number: None

PATIENT
  Age: 44 Year
  Sex: Female

DRUGS (1)
  1. VERZENIO [Suspect]
     Active Substance: ABEMACICLIB
     Indication: Breast cancer female

REACTIONS (6)
  - Triple negative breast cancer [None]
  - Nerve compression [None]
  - Neuralgia [None]
  - Fatigue [None]
  - Nausea [None]
  - Tooth infection [None]
